FAERS Safety Report 13695380 (Version 1)
Quarter: 2017Q2

REPORT INFORMATION
  Report Type: Spontaneous
  Country: US (occurrence: US)
  Receive Date: 20170627
  Receipt Date: 20170627
  Transmission Date: 20170830
  Serious: No
  Sender: FDA-Public Use
  Company Number: US-ACTELION-A-US2017-148514

PATIENT
  Age: 67 Year
  Sex: Female

DRUGS (9)
  1. MIDODRINE [Concomitant]
     Active Substance: MIDODRINE
  2. PRILOSEC [Concomitant]
     Active Substance: OMEPRAZOLE MAGNESIUM
  3. XARELTO [Concomitant]
     Active Substance: RIVAROXABAN
  4. AMBRISENTAN [Suspect]
     Active Substance: AMBRISENTAN
     Indication: PULMONARY ARTERIAL HYPERTENSION
     Dosage: 10 MG, QD
     Route: 048
     Dates: start: 20160323
  5. EDECRIN [Concomitant]
     Active Substance: ETHACRYNIC ACID
  6. PROPAFENONE. [Concomitant]
     Active Substance: PROPAFENONE
  7. UPTRAVI [Suspect]
     Active Substance: SELEXIPAG
     Indication: PULMONARY ARTERIAL HYPERTENSION
     Dosage: 400 MCG, BID
     Route: 048
     Dates: start: 20170110
  8. ATORVASTATIN [Concomitant]
     Active Substance: ATORVASTATIN
  9. ADCIRCA [Concomitant]
     Active Substance: TADALAFIL

REACTIONS (6)
  - Nausea [Unknown]
  - Pain in jaw [Unknown]
  - Flushing [Unknown]
  - Myalgia [Unknown]
  - Diarrhoea [Unknown]
  - Headache [Unknown]
